FAERS Safety Report 16636416 (Version 4)
Quarter: 2019Q4

REPORT INFORMATION
  Report Type: Spontaneous
  Country: US (occurrence: US)
  Receive Date: 20190726
  Receipt Date: 20191202
  Transmission Date: 20200122
  Serious: No
  Sender: FDA-Public Use
  Company Number: US-PFIZER INC-2018391294

PATIENT
  Age: 41 Year
  Sex: Female
  Weight: 52 kg

DRUGS (22)
  1. LITHIUM. [Concomitant]
     Active Substance: LITHIUM
     Indication: SUICIDAL IDEATION
  2. FISH OIL [Concomitant]
     Active Substance: FISH OIL
     Indication: DEPRESSION
     Dosage: 1 CAPSULE TAKEN BY MOUTH ABOUT 2-3 TIMES WEEKLY
     Route: 048
     Dates: start: 200809
  3. MAGNESIUM [Concomitant]
     Active Substance: MAGNESIUM
     Indication: SUPPLEMENTATION THERAPY
     Dosage: UNK
     Route: 048
     Dates: start: 200809, end: 201901
  4. LIDOCAINE. [Concomitant]
     Active Substance: LIDOCAINE
     Indication: ARTHRITIS
     Dosage: 2% OINTMENT APPLIED TO AFFECTED AREAS AS NEEDED
     Route: 061
  5. LYRICA [Suspect]
     Active Substance: PREGABALIN
     Indication: DEGENERATIVE BONE DISEASE
     Dosage: 125 MG, DAILY (25MG 5 TIMES DAILY)
     Route: 048
     Dates: start: 20091215
  6. LYRICA [Suspect]
     Active Substance: PREGABALIN
     Indication: CHONDROPATHY
  7. LYRICA [Suspect]
     Active Substance: PREGABALIN
     Indication: ARTHROPATHY
  8. LYRICA [Suspect]
     Active Substance: PREGABALIN
     Indication: RADICULOPATHY
  9. LYRICA [Suspect]
     Active Substance: PREGABALIN
     Indication: SCIATICA
  10. LYRICA [Suspect]
     Active Substance: PREGABALIN
     Indication: NEURALGIA
  11. OMEPRAZOLE. [Concomitant]
     Active Substance: OMEPRAZOLE
     Indication: ABDOMINAL DISCOMFORT
     Dosage: 20 MG, 1X/DAY (20MG CAPSULE TAKEN BY MOUTH ONCE DAILY IN THE MORNING)
     Route: 048
     Dates: start: 200809
  12. LITHIUM. [Concomitant]
     Active Substance: LITHIUM
     Indication: DEPRESSION
     Dosage: 300 MG, 1X/DAY
     Route: 048
     Dates: start: 200809
  13. LYRICA [Suspect]
     Active Substance: PREGABALIN
     Indication: MUSCULOSKELETAL PAIN
  14. CYCLOBENZAPRINE. [Concomitant]
     Active Substance: CYCLOBENZAPRINE
     Indication: SCIATICA
  15. CALCIUM WITH VITAMIN D3 [Concomitant]
     Active Substance: CALCIUM CARBONATE\CHOLECALCIFEROL
     Indication: DEPRESSION
     Dosage: CAPLET TAKEN ABOUT 2-3 TIMES WEEKLY
     Route: 048
     Dates: start: 200809
  16. CYCLOBENZAPRINE. [Concomitant]
     Active Substance: CYCLOBENZAPRINE
     Indication: MUSCLE SPASMS
     Dosage: 10 MG, 3X/DAY
     Route: 048
     Dates: start: 200809
  17. LITHIUM. [Concomitant]
     Active Substance: LITHIUM
     Indication: BIPOLAR DISORDER
     Dosage: 300 MG, 2X/DAY
     Route: 048
  18. GABAPENTIN. [Concomitant]
     Active Substance: GABAPENTIN
     Indication: PAIN
     Dosage: OPENS THE CAPSULES, POURS OUT HALF OF THE POWDER, RECLOSES THE CAPSULES AND TAKES 50 MG DOSE
     Dates: start: 20190713
  19. NORCO [Concomitant]
     Active Substance: ACETAMINOPHEN\HYDROCODONE BITARTRATE
     Indication: PAIN
     Dosage: BREAKS 1 TABLET INTO 3 PIECES-TAKES 3 PIECES BY MOUTH ABOUT EVERY 5 HOURS OVER 24HOURS
     Route: 048
     Dates: start: 200809
  20. LITHIUM. [Concomitant]
     Active Substance: LITHIUM
     Indication: DISSOCIATIVE DISORDER
  21. IBUPROFEN. [Concomitant]
     Active Substance: IBUPROFEN
     Indication: INFLAMMATION
     Dosage: 600MG CAPLET TAKEN 2-3 TIMES DAILY AS NEEDED
     Route: 048
     Dates: start: 200809
  22. VITAMIN D3 [Concomitant]
     Active Substance: CHOLECALCIFEROL
     Indication: DEPRESSION
     Dosage: 2000MG TABLET TAKEN ABOUT 2-3 TIMES WEEKLY
     Route: 048
     Dates: start: 200809

REACTIONS (2)
  - Drug ineffective [Unknown]
  - Confusional state [Unknown]
